FAERS Safety Report 16805552 (Version 1)
Quarter: 2019Q4

REPORT INFORMATION
  Report Type: Spontaneous
  Country: US (occurrence: US)
  Receive Date: 20190913
  Receipt Date: 20190913
  Transmission Date: 20200122
  Serious: Yes (Hospitalization, Other)
  Sender: FDA-Public Use
  Company Number: None

PATIENT
  Sex: Male

DRUGS (11)
  1. LISINOPRIL. [Concomitant]
     Active Substance: LISINOPRIL
  2. METFORMIN [Concomitant]
     Active Substance: METFORMIN HYDROCHLORIDE
  3. ATORVASTATIN [Concomitant]
     Active Substance: ATORVASTATIN
  4. FUROSEMIDE. [Concomitant]
     Active Substance: FUROSEMIDE
  5. METOPROLOL. [Concomitant]
     Active Substance: METOPROLOL
  6. ALLOPURINOL. [Concomitant]
     Active Substance: ALLOPURINOL
  7. LATANOPROST. [Concomitant]
     Active Substance: LATANOPROST
  8. HUMIRA [Suspect]
     Active Substance: ADALIMUMAB
     Indication: RHEUMATOID ARTHRITIS
     Dosage: ?          OTHER FREQUENCY:EVERY 2 WEEKS;?
     Route: 058
     Dates: start: 20181203
  9. AMIODARONE [Concomitant]
     Active Substance: AMIODARONE
  10. CALCITRIOL. [Concomitant]
     Active Substance: CALCITRIOL
  11. ENTRESTO [Concomitant]
     Active Substance: SACUBITRIL\VALSARTAN

REACTIONS (2)
  - Pericardial effusion [None]
  - Cardiac failure [None]
